FAERS Safety Report 10550922 (Version 1)
Quarter: 2014Q4

REPORT INFORMATION
  Report Type: Spontaneous
  Country: CA (occurrence: None)
  Receive Date: 20141027
  Receipt Date: 20141027
  Transmission Date: 20150529
  Serious: Yes (Other)
  Sender: FDA-Public Use
  Company Number: VAL_03483_2014

PATIENT
  Age: 42 Year
  Sex: Male
  Weight: 78.5 kg

DRUGS (2)
  1. CALCITRIOL (CALCITRIOL) [Suspect]
     Active Substance: CALCITRIOL
     Indication: ALBRIGHT^S DISEASE
     Dosage: (DF)
  2. CALCITRIOL (CALCITRIOL) [Suspect]
     Active Substance: CALCITRIOL
     Indication: PSEUDOHYPOPARATHYROIDISM
     Dosage: (DF)

REACTIONS (6)
  - Acute myocardial infarction [None]
  - Calcinosis [None]
  - Arteriosclerosis coronary artery [None]
  - Syncope [None]
  - Articular calcification [None]
  - Arrhythmia [None]
